FAERS Safety Report 5108156-2 (Version None)
Quarter: 2006Q3

REPORT INFORMATION
  Report Type: 
  Country: None (occurrence: None)
  Receive Date: 20060919
  Receipt Date: 20060918
  Transmission Date: 20061208
  Serious: Yes (Hospitalization)
  Sender: FDA-Public Use
  Company Number: FR-GLAXOSMITHKLINE-B0438495A

PATIENT
  Age: 63 Year
  Sex: Female

DRUGS (3)
  1. AUGMENTIN [Suspect]
     Dosage: 3G PER DAY
     Route: 048
     Dates: start: 20060620, end: 20060630
  2. NEXIUM [Suspect]
     Dosage: 40MG PER DAY
     Route: 048
     Dates: start: 20060519, end: 20060704
  3. NISISCO [Concomitant]
     Indication: HYPERTENSION
     Route: 065

REACTIONS (6)
  - CELLULITIS [None]
  - DRUG RASH WITH EOSINOPHILIA AND SYSTEMIC SYMPTOMS [None]
  - EOSINOPHILIA [None]
  - HYPERSENSITIVITY [None]
  - PRURIGO [None]
  - TOXIC SKIN ERUPTION [None]
